FAERS Safety Report 20691918 (Version 1)
Quarter: 2022Q2

REPORT INFORMATION
  Report Type: Spontaneous
  Country: JP (occurrence: JP)
  Receive Date: 20220408
  Receipt Date: 20220408
  Transmission Date: 20220720
  Serious: Yes (Death, Other)
  Sender: FDA-Public Use
  Company Number: JP-GILEAD-2022-0576410

PATIENT
  Age: 73 Year
  Sex: Male

DRUGS (13)
  1. VEKLURY [Suspect]
     Active Substance: REMDESIVIR
     Indication: COVID-19
     Dosage: 200 MG, QD
     Route: 042
  2. VEKLURY [Suspect]
     Active Substance: REMDESIVIR
     Dosage: 100 MG, QD
     Route: 042
  3. AMBISOME [Suspect]
     Active Substance: AMPHOTERICIN B
     Indication: Systemic candida
     Dosage: 300 MG, QD
     Route: 042
  4. FAVIPIRAVIR [Concomitant]
     Active Substance: FAVIPIRAVIR
  5. CICLESONIDE [Concomitant]
     Active Substance: CICLESONIDE
  6. DEXAMETHASONE [Concomitant]
     Active Substance: DEXAMETHASONE
  7. MEROPENEM [Concomitant]
     Active Substance: MEROPENEM
  8. PIPERACILLIN AND TAZOBACTAM [Concomitant]
     Active Substance: PIPERACILLIN SODIUM\TAZOBACTAM SODIUM
  9. PREDNISOLONE [Concomitant]
     Active Substance: PREDNISOLONE
  10. VANCOMYCIN [Concomitant]
     Active Substance: VANCOMYCIN
  11. SULFAMETHOXAZOLE\TRIMETHOPRIM [Concomitant]
     Active Substance: SULFAMETHOXAZOLE\TRIMETHOPRIM
  12. ACYCLOVIR [Concomitant]
     Active Substance: ACYCLOVIR
  13. MICAFUNGIN [Concomitant]
     Active Substance: MICAFUNGIN

REACTIONS (1)
  - Drug ineffective [Fatal]
